FAERS Safety Report 4271233-2 (Version None)
Quarter: 2004Q1

REPORT INFORMATION
  Report Type: 
  Country: None (occurrence: None)
  Receive Date: 20040113
  Receipt Date: 20040108
  Transmission Date: 20041129
  Serious: Yes (Other)
  Sender: FDA-Public Use
  Company Number: 430015M03USA

PATIENT
  Age: 39 Year
  Sex: Male

DRUGS (6)
  1. NOVANTRONE [Suspect]
     Indication: MULTIPLE SCLEROSIS
     Dosage: 1 IN 4 MONTHS
     Dates: start: 20020401, end: 20030501
  2. PAROXETINE HCL [Concomitant]
  3. ONDANSETRON HCL [Concomitant]
  4. SILDENAFIL CITRATE [Concomitant]
  5. METHYLPREDNISOLONE [Concomitant]
  6. INTERFERON BETA [Concomitant]

REACTIONS (3)
  - CARDIOMYOPATHY [None]
  - EJECTION FRACTION DECREASED [None]
  - VENTRICULAR HYPOKINESIA [None]
